FAERS Safety Report 6016041-7 (Version None)
Quarter: 2008Q4

REPORT INFORMATION
  Report Type: 
  Country: None (occurrence: None)
  Receive Date: 20081222
  Receipt Date: 20081210
  Transmission Date: 20090506
  Serious: Yes (Other)
  Sender: FDA-Public Use
  Company Number: JP-PFIZER INC-2008156822

PATIENT

DRUGS (2)
  1. VFEND [Suspect]
     Indication: BRONCHOPULMONARY ASPERGILLOSIS
     Dosage: 3.3 MG/KG, 2X/DAY
     Route: 048
  2. CHEMOTHERAPY NOS [Concomitant]

REACTIONS (4)
  - HALLUCINATION, VISUAL [None]
  - RESTLESSNESS [None]
  - VISION BLURRED [None]
  - VISUAL FIELD DEFECT [None]
